FAERS Safety Report 8602630-X (Version None)
Quarter: 2012Q3

REPORT INFORMATION
  Report Type: 
  Country: None (occurrence: None)
  Receive Date: 20120817
  Receipt Date: 20120810
  Transmission Date: 20120928
  Serious: Yes (Hospitalization)
  Sender: FDA-Public Use
  Company Number: ZA-ROCHE-1100983

PATIENT
  Sex: Male

DRUGS (4)
  1. PROGRAF [Concomitant]
  2. PREDNISONE TAB [Concomitant]
  3. VALCYTE [Concomitant]
  4. CELLCEPT [Suspect]
     Indication: PRODUCT USED FOR UNKNOWN INDICATION

REACTIONS (2)
  - BLOOD CALCIUM INCREASED [None]
  - HAEMOGLOBIN DECREASED [None]
